FAERS Safety Report 25613172 (Version 2)
Quarter: 2025Q3

REPORT INFORMATION
  Report Type: Spontaneous
  Country: US (occurrence: US)
  Receive Date: 20250728
  Receipt Date: 20250915
  Transmission Date: 20251021
  Serious: Yes (Other)
  Sender: ABBVIE
  Company Number: US-ABBVIE-6387324

PATIENT
  Age: 28 Year
  Sex: Female
  Weight: 90 kg

DRUGS (2)
  1. RINVOQ [Suspect]
     Active Substance: UPADACITINIB
     Indication: Hidradenitis
     Dosage: FORM STRENGTH: 15 MG
     Route: 048
     Dates: start: 202506
  2. RINVOQ [Suspect]
     Active Substance: UPADACITINIB
     Indication: Hidradenitis
     Dosage: FORM STRENGTH: 15 MG
     Route: 048
     Dates: start: 202507

REACTIONS (7)
  - Suicidal ideation [Recovered/Resolved]
  - Headache [Recovered/Resolved]
  - Depression [Recovered/Resolved]
  - Off label use [Not Recovered/Not Resolved]
  - Headache [Recovered/Resolved]
  - Depression [Recovered/Resolved]
  - Suicidal ideation [Recovered/Resolved]
